FAERS Safety Report 25964374 (Version 3)
Quarter: 2025Q4

REPORT INFORMATION
  Report Type: Report from Study
  Country: CA (occurrence: CA)
  Receive Date: 20251027
  Receipt Date: 20251230
  Transmission Date: 20260118
  Serious: Yes (Other)
  Sender: ALEXION PHARMACEUTICALS
  Company Number: CA-AstraZeneca-CH-00978013A

PATIENT
  Sex: Male

DRUGS (1)
  1. DURVALUMAB [Suspect]
     Active Substance: DURVALUMAB
     Indication: Bladder cancer
     Dosage: 1500 MILLIGRAM, Q3W
     Dates: start: 20250925

REACTIONS (2)
  - Haematotoxicity [Unknown]
  - Nephropathy toxic [Unknown]
